FAERS Safety Report 21906036 (Version 2)
Quarter: 2023Q1

REPORT INFORMATION
  Report Type: Spontaneous
  Country: CO (occurrence: CO)
  Receive Date: 20230124
  Receipt Date: 20230204
  Transmission Date: 20230417
  Serious: No
  Sender: FDA-Public Use
  Company Number: CO-BAXTER-2023BAX011155

PATIENT
  Age: 58 Year
  Sex: Female

DRUGS (4)
  1. SODIUM CHLORIDE [Suspect]
     Active Substance: SODIUM CHLORIDE
     Indication: Medication dilution
     Dosage: SODIUM CHLORIDE 0.9% INFUSER 5 ML/HR FINAL VOLUME OF 240 ML
     Route: 065
     Dates: start: 20230102, end: 20230104
  2. SODIUM CHLORIDE [Suspect]
     Active Substance: SODIUM CHLORIDE
     Dosage: UNK
     Route: 065
     Dates: start: 20230116, end: 20230118
  3. FLUOROURACIL [Suspect]
     Active Substance: FLUOROURACIL
     Dosage: FLUROURACIL 3576 MG IN SODIUM CHLORIDE, INFUSER 5 ML/HR
     Route: 065
     Dates: start: 20230102, end: 20230104
  4. FLUOROURACIL [Suspect]
     Active Substance: FLUOROURACIL
     Dosage: UNK
     Route: 065
     Dates: start: 20230116, end: 20230118

REACTIONS (2)
  - Headache [Unknown]
  - Product administration error [Unknown]

NARRATIVE: CASE EVENT DATE: 20230102
